FAERS Safety Report 18944232 (Version 2)
Quarter: 2021Q1

REPORT INFORMATION
  Report Type: Spontaneous
  Country: US (occurrence: US)
  Receive Date: 20210226
  Receipt Date: 20210315
  Transmission Date: 20210420
  Serious: Yes (Life-Threatening, Hospitalization, Other)
  Sender: FDA-Public Use
  Company Number: US-PFIZER INC-2021201055

PATIENT
  Age: 65 Year
  Sex: Male

DRUGS (6)
  1. LENALIDOMIDE [Suspect]
     Active Substance: LENALIDOMIDE
     Indication: PLASMA CELL MYELOMA
     Dosage: UNK, CYCLIC (FIVE CYCLES)
  2. BORTEZOMIB. [Suspect]
     Active Substance: BORTEZOMIB
     Indication: PLASMA CELL MYELOMA
     Dosage: UNK, CYCLIC (FIVE CYCLES)
  3. ACETYLSALICYLIC ACID [Concomitant]
     Active Substance: ASPIRIN
     Dosage: UNK
  4. LENALIDOMIDE [Suspect]
     Active Substance: LENALIDOMIDE
     Dosage: 15 MG, ALTERNATE DAY (EVERY OTHER DAY, MAINTENANCE)
  5. MELPHALAN. [Suspect]
     Active Substance: MELPHALAN
     Indication: BONE MARROW CONDITIONING REGIMEN
     Dosage: UNK
  6. DEXAMETHASONE. [Suspect]
     Active Substance: DEXAMETHASONE
     Indication: PLASMA CELL MYELOMA
     Dosage: UNK, CYCLIC (FIVE CYCLES)

REACTIONS (8)
  - Cardiac dysfunction [Recovered/Resolved]
  - Thrombocytopenia [Unknown]
  - Tachycardia [Recovered/Resolved]
  - Cardiac septal hypertrophy [Recovered/Resolved]
  - Autonomic nervous system imbalance [Recovered/Resolved]
  - Mitral valve incompetence [Recovered/Resolved]
  - Orthostatic hypotension [Recovered/Resolved]
  - Atrial flutter [Recovered/Resolved]
